FAERS Safety Report 9223899 (Version 5)
Quarter: 2013Q3

REPORT INFORMATION
  Report Type: Report from Study
  Country: IN (occurrence: IN)
  Receive Date: 20130411
  Receipt Date: 20130708
  Transmission Date: 20140515
  Serious: Yes (Hospitalization)
  Sender: FDA-Public Use
  Company Number: IN-BIOGENIDEC-2012BI041154

PATIENT
  Age: 32 Year
  Sex: Male
  Weight: 89 kg

DRUGS (8)
  1. BG00012 [Suspect]
     Indication: MULTIPLE SCLEROSIS
     Dates: start: 20110628, end: 20130219
  2. MODALERT [Concomitant]
     Indication: NERVOUS SYSTEM DISORDER
     Route: 048
     Dates: start: 20120908
  3. CALINEPT [Concomitant]
     Indication: ROUTINE HEALTH MAINTENANCE
     Route: 048
     Dates: start: 20111118
  4. NEXITO [Concomitant]
     Indication: DEPRESSION
     Route: 048
     Dates: start: 20120908
  5. TOLFREE [Concomitant]
     Indication: MUSCLE RELAXANT THERAPY
     Route: 048
     Dates: start: 20120908
  6. K2 CREAM [Concomitant]
     Indication: ANTIFUNGAL TREATMENT
     Dates: start: 20120920
  7. SUNCROSS AGUA GEL [Concomitant]
     Indication: PROPHYLAXIS AGAINST SOLAR RADIATION
     Dates: start: 20120920
  8. MONOCORTIL [Concomitant]
     Indication: ANTIFUNGAL TREATMENT
     Dates: start: 20120920

REACTIONS (1)
  - Urinary tract infection [Recovered/Resolved]
